FAERS Safety Report 8181052-2 (Version None)
Quarter: 2012Q1

REPORT INFORMATION
  Report Type: 
  Country: None (occurrence: None)
  Receive Date: 20120302
  Receipt Date: 20120228
  Transmission Date: 20120608
  Serious: Yes (Life-Threatening, Hospitalization)
  Sender: FDA-Public Use
  Company Number: NO-BAYER-2012-019297

PATIENT
  Age: 12 Year
  Sex: Female

DRUGS (3)
  1. ASPIRIN [Suspect]
     Indication: RHEUMATIC FEVER
     Dosage: 1 G, UNK
     Dates: start: 20111118, end: 20120101
  2. OMEPRAZOLE [Concomitant]
     Dosage: 20 MG, HS
  3. VALPROIC ACID [Interacting]
     Indication: SYDENHAM'S CHOREA
     Dosage: 150 MG, UNK
     Dates: start: 20111117, end: 20120101

REACTIONS (5)
  - GAIT DISTURBANCE [None]
  - LABELLED DRUG-DRUG INTERACTION MEDICATION ERROR [None]
  - DRUG LEVEL INCREASED [None]
  - CONFUSIONAL STATE [None]
  - FATIGUE [None]
